FAERS Safety Report 18652809 (Version 6)
Quarter: 2021Q3

REPORT INFORMATION
  Report Type: Report from Study
  Country: NO (occurrence: NO)
  Receive Date: 20201223
  Receipt Date: 20210906
  Transmission Date: 20211014
  Serious: Yes (Hospitalization)
  Sender: FDA-Public Use
  Company Number: NO-ROCHE-2606313

PATIENT
  Age: 54 Year
  Sex: Female
  Weight: 61.1 kg

DRUGS (22)
  1. TARGINIQ ER [Concomitant]
     Active Substance: NALOXONE HYDROCHLORIDE\OXYCODONE HYDROCHLORIDE
     Indication: PAIN
     Dosage: 10/5 MG X 2
     Dates: start: 20200609
  2. NITROFURANTOIN. [Concomitant]
     Active Substance: NITROFURANTOIN
     Dates: start: 20201229
  3. ATEZOLIZUMAB. [Suspect]
     Active Substance: ATEZOLIZUMAB
     Route: 042
     Dates: start: 20200715
  4. CISPLATIN. [Suspect]
     Active Substance: CISPLATIN
     Indication: CERVIX CARCINOMA RECURRENT
     Dosage: DATE OF MOST RECENT DOSE OF CISPLATIN PRIOR TO URINARY INFECTION DUE TO KLEBSIELLA PNEUMONIAE, CLOST
     Route: 042
     Dates: start: 20200508
  5. CARBOPLATIN. [Suspect]
     Active Substance: CARBOPLATIN
     Indication: CERVIX CARCINOMA RECURRENT
     Dosage: AUC 5?ON 11/NOV/2020, SHE RECEIVED MOST RECENT DOSE OF CARBOPLATIN PRIOR TO URINARY RETENTION AND UR
     Route: 042
     Dates: start: 20200820
  6. LAXOBERAL [Concomitant]
     Active Substance: SODIUM PICOSULFATE
     Indication: CONSTIPATION
     Dosage: 10 DROPS
     Dates: start: 201909
  7. BEVACIZUMAB. [Suspect]
     Active Substance: BEVACIZUMAB
     Indication: CERVIX CARCINOMA RECURRENT
     Dosage: ON DAY 1?DATE OF MOST RECENT DOSE OF BEVACIZUMAB PRIOR TO URINARY INFECTION DUE TO KLEBSIELLA PNEUMO
     Route: 042
     Dates: start: 20200507, end: 20210429
  8. PACLITAXEL. [Suspect]
     Active Substance: PACLITAXEL
     Route: 065
     Dates: start: 20200716, end: 20200716
  9. CIPROFLOXACIN. [Concomitant]
     Active Substance: CIPROFLOXACIN
     Route: 048
  10. PANODIL [Concomitant]
     Active Substance: ACETAMINOPHEN
     Indication: PAIN
     Dates: start: 201909
  11. LYRICA [Concomitant]
     Active Substance: PREGABALIN
     Indication: PAIN
     Dosage: 25 MG*2
     Dates: start: 20200619
  12. ATEZOLIZUMAB. [Suspect]
     Active Substance: ATEZOLIZUMAB
     Indication: CERVIX CARCINOMA RECURRENT
     Dosage: ON DAY 1?DATE OF MOST RECENT DOSE OF ATEZOLIZUMAB PRIOR TO URINARY INFECTION DUE TO KLEBSIELLA PNEUM
     Route: 041
     Dates: start: 20200507, end: 20210429
  13. QUETIAPINE. [Concomitant]
     Active Substance: QUETIAPINE
     Dates: start: 202001
  14. VANCOMYCIN [Concomitant]
     Active Substance: VANCOMYCIN
  15. TRIMETHOPRIM. [Concomitant]
     Active Substance: TRIMETHOPRIM
     Dates: start: 20200908, end: 20201216
  16. BEVACIZUMAB. [Suspect]
     Active Substance: BEVACIZUMAB
     Route: 042
     Dates: start: 20200715, end: 20200715
  17. PACLITAXEL. [Suspect]
     Active Substance: PACLITAXEL
     Indication: CERVIX CARCINOMA RECURRENT
     Dosage: DATE OF MOST RECENT DOSE OF PACLTIXAEL PRIOR TO URINARY INFECTION DUE TO KLEBSIELLA PNEUMONIAE, CLOS
     Route: 042
     Dates: start: 20200508
  18. OXYCONTIN [Concomitant]
     Active Substance: OXYCODONE HYDROCHLORIDE
     Indication: PAIN
     Dates: start: 202002
  19. IMOVANE [Concomitant]
     Active Substance: ZOPICLONE
     Dates: start: 201911
  20. HIPREX (NORWAY) [Concomitant]
     Dates: start: 20201217, end: 20201228
  21. SOMAC [Concomitant]
     Active Substance: PANTOPRAZOLE SODIUM
     Dates: start: 20201021
  22. CISPLATIN. [Suspect]
     Active Substance: CISPLATIN
     Route: 065
     Dates: start: 20200716, end: 20200716

REACTIONS (7)
  - Urinary tract infection [Recovered/Resolved]
  - Thrombosis [Recovered/Resolved]
  - Clostridial infection [Recovered/Resolved]
  - Urosepsis [Recovered/Resolved]
  - Urinary retention [Recovered/Resolved]
  - Proteinuria [Not Recovered/Not Resolved]
  - Urinary tract infection bacterial [Recovered/Resolved]

NARRATIVE: CASE EVENT DATE: 20200519
